FAERS Safety Report 6129840-8 (Version None)
Quarter: 2009Q1

REPORT INFORMATION
  Report Type: 
  Country: None (occurrence: None)
  Receive Date: 20090324
  Receipt Date: 20090324
  Transmission Date: 20090719
  Serious: Yes (Hospitalization)
  Sender: FDA-Public Use
  Company Number: PHHO2004ES10135

PATIENT
  Sex: Female

DRUGS (2)
  1. TAMOXIFEN CITRATE [Suspect]
     Indication: BREAST CANCER
     Dosage: 20 MG, QD
     Route: 048
     Dates: start: 19980625, end: 20010709
  2. TAXOTERE [Suspect]
     Dates: start: 20030911

REACTIONS (1)
  - PANCYTOPENIA [None]
